FAERS Safety Report 20327118 (Version 1)
Quarter: 2022Q1

REPORT INFORMATION
  Report Type: Report from Study
  Country: FR (occurrence: FR)
  Receive Date: 20220112
  Receipt Date: 20220112
  Transmission Date: 20220424
  Serious: Yes (Hospitalization)
  Sender: FDA-Public Use
  Company Number: FR-SERVIER-S21005753

PATIENT

DRUGS (8)
  1. PEGASPARGASE [Suspect]
     Active Substance: PEGASPARGASE
     Indication: Acute lymphocytic leukaemia
     Dosage: 720 IU, (D15, D43)
     Route: 042
     Dates: start: 20210322
  2. TN UNSPECIFIED [Concomitant]
     Indication: Acute lymphocytic leukaemia
     Dosage: 620 MG, (D1, D29)
     Route: 042
     Dates: start: 20210308, end: 20210406
  3. TN UNSPECIFIED [Concomitant]
     Indication: Acute lymphocytic leukaemia
     Dosage: 44 MG, (D3 TO D6, D10 TO D13, D31 TO D34)
     Route: 042
     Dates: start: 20210310, end: 20210418
  4. TN UNSPECIFIED [Concomitant]
     Dosage: 20 MG, (D3, D31)
     Route: 037
     Dates: start: 20210310, end: 20210408
  5. TN UNSPECIFIED [Concomitant]
     Indication: Acute lymphocytic leukaemia
     Dosage: 0.9 MG, (D15, D22, D43, D50)
     Route: 042
     Dates: start: 20210322
  6. TN UNSPECIFIED [Concomitant]
     Indication: Acute lymphocytic leukaemia
     Dosage: 8 MG, (D3, D31)
     Route: 037
     Dates: start: 20210310, end: 20210408
  7. TN UNSPECIFIED [Concomitant]
     Indication: Acute lymphocytic leukaemia
     Dosage: 10 MG, (D3, D31)
     Route: 037
     Dates: start: 20210310, end: 20210408
  8. TN UNSPECIFIED [Concomitant]
     Indication: Acute lymphocytic leukaemia
     Dosage: 35 MG, (D1 TO D14, D29 TO D42)
     Route: 048
     Dates: start: 20210308, end: 20210419

REACTIONS (1)
  - Bacterial sepsis [Recovered/Resolved]

NARRATIVE: CASE EVENT DATE: 20210421
